FAERS Safety Report 5217986-8 (Version None)
Quarter: 2007Q1

REPORT INFORMATION
  Report Type: 
  Country: None (occurrence: None)
  Receive Date: 20061130
  Receipt Date: 20060413
  Transmission Date: 20070707
  Serious: Yes (Hospitalization)
  Sender: FDA-Public Use
  Company Number: US200607001185

PATIENT
  Sex: Male
  Weight: 81.6 kg

DRUGS (4)
  1. ZYPREXA [Suspect]
     Dates: start: 19960101, end: 20050101
  2. METFORMIN HCL [Concomitant]
  3. VENLAFAXINE HCL [Concomitant]
  4. SERTRALINE [Concomitant]

REACTIONS (2)
  - BLOOD TRIGLYCERIDES INCREASED [None]
  - PANCREATITIS [None]
